FAERS Safety Report 24259884 (Version 1)
Quarter: 2024Q3

REPORT INFORMATION
  Report Type: Spontaneous
  Country: US (occurrence: None)
  Receive Date: 20240827
  Receipt Date: 20240827
  Transmission Date: 20241016
  Serious: Yes (Other)
  Sender: Public
  Company Number: None

PATIENT
  Age: 65 Year
  Sex: Female
  Weight: 94.95 kg

DRUGS (10)
  1. MOUNJARO [Suspect]
     Active Substance: TIRZEPATIDE
     Indication: Blood glucose abnormal
     Dates: start: 20240226, end: 20240401
  2. MOUNJARO [Suspect]
     Active Substance: TIRZEPATIDE
     Indication: Weight control
  3. MOUNJARO [Suspect]
     Active Substance: TIRZEPATIDE
     Indication: Weight control
  4. MOUNJARO [Suspect]
     Active Substance: TIRZEPATIDE
     Indication: Weight control
  5. LOSARTAN [Concomitant]
     Active Substance: LOSARTAN\LOSARTAN POTASSIUM
  6. Rosouvastatin [Concomitant]
  7. METOPROLOL [Concomitant]
     Active Substance: METOPROLOL
  8. JARDIANCE [Concomitant]
     Active Substance: EMPAGLIFLOZIN
  9. BIOTIN [Concomitant]
     Active Substance: BIOTIN
  10. ASPIRIN [Concomitant]
     Active Substance: ASPIRIN

REACTIONS (5)
  - Nausea [None]
  - Vomiting [None]
  - Drug intolerance [None]
  - Chronic kidney disease [None]
  - Disease progression [None]

NARRATIVE: CASE EVENT DATE: 20240304
